FAERS Safety Report 19775073 (Version 4)
Quarter: 2021Q4

REPORT INFORMATION
  Report Type: Report from Study
  Country: JP (occurrence: JP)
  Receive Date: 20210901
  Receipt Date: 20211115
  Transmission Date: 20220303
  Serious: Yes (Death, Other)
  Sender: FDA-Public Use
  Company Number: JP-TAKEDA-2021TJP081777

PATIENT
  Age: 59 Year
  Sex: Male
  Weight: 48.7 kg

DRUGS (3)
  1. BRENTUXIMAB VEDOTIN [Suspect]
     Active Substance: BRENTUXIMAB VEDOTIN
     Indication: Adult T-cell lymphoma/leukaemia stage IV
     Dosage: 1.8 MILLIGRAM/KILOGRAM
     Route: 050
     Dates: start: 20200625
  2. PREDNISOLONE [Concomitant]
     Active Substance: PREDNISOLONE
     Indication: Adult T-cell lymphoma/leukaemia stage IV
     Dosage: UNK
     Route: 065
     Dates: start: 20200626, end: 20200630
  3. DECADRON [Concomitant]
     Active Substance: DEXAMETHASONE
     Indication: Adult T-cell lymphoma/leukaemia stage IV
     Dosage: UNK
     Route: 065
     Dates: start: 20210105, end: 20210514

REACTIONS (2)
  - Peripheral T-cell lymphoma unspecified [Fatal]
  - Condition aggravated [Fatal]

NARRATIVE: CASE EVENT DATE: 20210626
